FAERS Safety Report 25646803 (Version 2)
Quarter: 2025Q3

REPORT INFORMATION
  Report Type: Report from Study
  Country: US (occurrence: US)
  Receive Date: 20250805
  Receipt Date: 20250822
  Transmission Date: 20251021
  Serious: Yes (Hospitalization)
  Sender: ABBVIE
  Company Number: US-ABBVIE-6399890

PATIENT
  Age: 81 Year
  Sex: Female

DRUGS (2)
  1. HUMIRA [Suspect]
     Active Substance: ADALIMUMAB
     Indication: Rheumatoid arthritis
     Route: 058
     Dates: start: 20190809
  2. HYDROCHLOROTHIAZIDE [Suspect]
     Active Substance: HYDROCHLOROTHIAZIDE
     Indication: Blood pressure measurement
     Route: 065

REACTIONS (5)
  - Malnutrition [Not Recovered/Not Resolved]
  - Ear discomfort [Not Recovered/Not Resolved]
  - Balance disorder [Not Recovered/Not Resolved]
  - Pruritus allergic [Unknown]
  - Asthenia [Not Recovered/Not Resolved]

NARRATIVE: CASE EVENT DATE: 20250601
